FAERS Safety Report 5270735-X (Version None)
Quarter: 2007Q1

REPORT INFORMATION
  Report Type: 
  Country: None (occurrence: None)
  Receive Date: 20070319
  Receipt Date: 20070319
  Transmission Date: 20070707
  Serious: Yes (Other)
  Sender: FDA-Public Use
  Company Number: None

PATIENT
  Sex: Female
  Weight: 87.5442 kg

DRUGS (2)
  1. TRASYLOL [Suspect]
     Indication: HAEMORRHAGE
     Dates: start: 20070122, end: 20070122
  2. TRASYLOL [Suspect]
     Indication: PROPHYLAXIS
     Dates: start: 20070122, end: 20070122

REACTIONS (3)
  - DIALYSIS [None]
  - HEPARIN-INDUCED THROMBOCYTOPENIA [None]
  - RENAL FAILURE ACUTE [None]
